FAERS Safety Report 5733035-7 (Version None)
Quarter: 2008Q2

REPORT INFORMATION
  Report Type: 
  Country: None (occurrence: None)
  Receive Date: 20080509
  Receipt Date: 20080430
  Transmission Date: 20081010
  Serious: Yes (Other)
  Sender: FDA-Public Use
  Company Number: US-BAYER-200821749NA

PATIENT
  Age: 36 Year
  Sex: Female
  Weight: 73 kg

DRUGS (1)
  1. MAGNEVIST [Suspect]
     Indication: NUCLEAR MAGNETIC RESONANCE IMAGING
     Dosage: TOTAL DAILY DOSE: 16 ML  UNIT DOSE: 100 ML
     Route: 042
     Dates: start: 20080424, end: 20080424

REACTIONS (5)
  - DYSPNOEA [None]
  - ERYTHEMA [None]
  - FLUSHING [None]
  - LIP SWELLING [None]
  - OEDEMA PERIPHERAL [None]
